FAERS Safety Report 6018758-7 (Version None)
Quarter: 2008Q4

REPORT INFORMATION
  Report Type: 
  Country: None (occurrence: None)
  Receive Date: 20081223
  Receipt Date: 20081219
  Transmission Date: 20090506
  Serious: Yes (Hospitalization)
  Sender: FDA-Public Use
  Company Number: US-GILEAD-2008-0019581

PATIENT
  Age: 47 Year
  Sex: Male

DRUGS (5)
  1. TRUVADA [Suspect]
     Indication: HIV INFECTION
  2. INTELENCE [Suspect]
     Indication: HIV INFECTION
     Dates: start: 20080911, end: 20081031
  3. AZT [Suspect]
     Indication: HIV INFECTION
  4. ISENTRESS [Suspect]
     Indication: HIV INFECTION
     Dates: start: 20080911
  5. METFORMIN HCL [Concomitant]
     Indication: DIABETES MELLITUS

REACTIONS (2)
  - ANAEMIA [None]
  - RED BLOOD CELL SCHISTOCYTES PRESENT [None]
